FAERS Safety Report 22766486 (Version 2)
Quarter: 2024Q3

REPORT INFORMATION
  Report Type: Spontaneous
  Country: US (occurrence: US)
  Receive Date: 20230731
  Receipt Date: 20240813
  Transmission Date: 20241016
  Serious: No
  Sender: ENDO
  Company Number: ENDG23-02835

PATIENT

DRUGS (2)
  1. BREVITAL SODIUM [Suspect]
     Active Substance: METHOHEXITAL SODIUM
     Indication: Surgery
     Dosage: UNK UNKNOWN, UNKNOWN
     Route: 065
     Dates: start: 20230531, end: 20230531
  2. BREVITAL SODIUM [Suspect]
     Active Substance: METHOHEXITAL SODIUM
     Dosage: UNK UNKNOWN, UNKNOWN (SECOND DOSE)
     Route: 065
     Dates: start: 2023

REACTIONS (1)
  - Drug ineffective [Unknown]

NARRATIVE: CASE EVENT DATE: 20230531
